FAERS Safety Report 7052343-3 (Version None)
Quarter: 2010Q4

REPORT INFORMATION
  Report Type: 
  Country: None (occurrence: None)
  Receive Date: 20101019
  Receipt Date: 20101012
  Transmission Date: 20110411
  Serious: Yes (Death, Hospitalization)
  Sender: FDA-Public Use
  Company Number: BE-ABBOTT-10P-013-0677343-00

PATIENT
  Sex: Male

DRUGS (14)
  1. HUMIRA [Suspect]
     Indication: RHEUMATOID ARTHRITIS
     Dates: end: 20060329
  2. HUMIRA [Suspect]
  3. PREDNISOLONE [Concomitant]
     Indication: RHEUMATOID ARTHRITIS
  4. FROBEN [Concomitant]
     Indication: RHEUMATOID ARTHRITIS
     Dosage: 100 MG DAILY
  5. ACETAMINOPHEN [Concomitant]
     Indication: RHEUMATOID ARTHRITIS
     Dosage: 1 GRAM DAILY
  6. CRESTOR [Concomitant]
     Indication: HYPERCHOLESTEROLAEMIA
  7. PLAVIX [Concomitant]
     Indication: CARDIOVASCULAR EVENT PROPHYLAXIS
  8. ASAFLOW [Concomitant]
     Indication: CARDIOVASCULAR EVENT PROPHYLAXIS
  9. ZANIDIP [Concomitant]
     Indication: HYPERTENSION
  10. ISOTEN [Concomitant]
     Indication: HYPERTENSION
  11. PANTOMED [Concomitant]
     Indication: GASTRIC ULCER
  12. CALCIUM [Concomitant]
     Indication: OSTEOPOROSIS
  13. D-CURE [Concomitant]
     Indication: OSTEOPOROSIS
  14. ACLASTA [Concomitant]
     Indication: OSTEOPOROSIS

REACTIONS (7)
  - AORTIC ANEURYSM RUPTURE [None]
  - CARDIAC ARREST [None]
  - CHEST PAIN [None]
  - CONDITION AGGRAVATED [None]
  - ELECTROMECHANICAL DISSOCIATION [None]
  - HAEMODYNAMIC INSTABILITY [None]
  - HAEMOTHORAX [None]
